FAERS Safety Report 19601468 (Version 1)
Quarter: 2021Q3

REPORT INFORMATION
  Report Type: Spontaneous
  Country: US (occurrence: US)
  Receive Date: 20210722
  Receipt Date: 20210722
  Transmission Date: 20211014
  Serious: No
  Sender: FDA-Public Use
  Company Number: 2021SGN01770

PATIENT
  Sex: Female

DRUGS (16)
  1. SENNA PLUS [Concomitant]
     Active Substance: DOCUSATE SODIUM\SENNOSIDES\SENNOSIDES A AND B
  2. HERCEPTIN [Suspect]
     Active Substance: TRASTUZUMAB
  3. DILAUDID [Concomitant]
     Active Substance: HYDROMORPHONE HYDROCHLORIDE
  4. XELODA [Suspect]
     Active Substance: CAPECITABINE
  5. KADCYLA [Concomitant]
     Active Substance: ADO-TRASTUZUMAB EMTANSINE
  6. ONDANSETRON [Concomitant]
     Active Substance: ONDANSETRON
  7. KLOR?CON [Concomitant]
     Active Substance: POTASSIUM CHLORIDE
  8. TYLENOL [Concomitant]
     Active Substance: ACETAMINOPHEN
  9. ULTRAM [PARACETAMOL;TRAMADOL HYDROCHLORIDE] [Concomitant]
     Active Substance: ACETAMINOPHEN\TRAMADOL HYDROCHLORIDE
  10. CHOLECALCIFEROL [Concomitant]
     Active Substance: CHOLECALCIFEROL
  11. CALCIUM CARBONATE AND VITAMIN D3 [Concomitant]
     Active Substance: CALCIUM CARBONATE\CHOLECALCIFEROL
  12. MAG?OX [Concomitant]
     Active Substance: MAGNESIUM OXIDE
  13. METOPROLOL SUCCINATE. [Concomitant]
     Active Substance: METOPROLOL SUCCINATE
  14. TUKYSA [Suspect]
     Active Substance: TUCATINIB
     Indication: HER2 POSITIVE BREAST CANCER
     Dosage: 300 MG, BID
     Route: 048
     Dates: start: 20200610, end: 202103
  15. ZOMETA [Concomitant]
     Active Substance: ZOLEDRONIC ACID
  16. ZYLOPRIM [Concomitant]
     Active Substance: ALLOPURINOL

REACTIONS (3)
  - Diarrhoea [Unknown]
  - Disease progression [Recovering/Resolving]
  - Bone pain [Recovered/Resolved]

NARRATIVE: CASE EVENT DATE: 20200828
